FAERS Safety Report 20335373 (Version 1)
Quarter: 2022Q1

REPORT INFORMATION
  Report Type: Spontaneous
  Country: US (occurrence: None)
  Receive Date: 20220113
  Receipt Date: 20220113
  Transmission Date: 20220423
  Serious: Yes (Disabling)
  Sender: FDA-Public Use
  Company Number: None

PATIENT
  Age: 64 Year
  Sex: Female

DRUGS (1)
  1. BELBUCA [Suspect]
     Active Substance: BUPRENORPHINE HYDROCHLORIDE
     Indication: Product used for unknown indication
     Dosage: FREQUENCY : EVERY 6 HOURS;?OTHER ROUTE : APPLIED FILM TO INSIDE OF CHEEK IN MOUTH;?
     Route: 050

REACTIONS (4)
  - Drug ineffective [None]
  - Gingival pain [None]
  - Teething [None]
  - Economic problem [None]

NARRATIVE: CASE EVENT DATE: 20200401
